APPROVED DRUG PRODUCT: ENOXAPARIN SODIUM (PRESERVATIVE FREE)
Active Ingredient: ENOXAPARIN SODIUM
Strength: 40MG/0.4ML (100MG/ML)
Dosage Form/Route: INJECTABLE;SUBCUTANEOUS
Application: A078990 | Product #002 | TE Code: AP
Applicant: GLAND PHARMA LTD
Approved: Sep 28, 2018 | RLD: No | RS: No | Type: RX